FAERS Safety Report 6744555-0 (Version None)
Quarter: 2010Q2

REPORT INFORMATION
  Report Type: 
  Country: None (occurrence: None)
  Receive Date: 20100527
  Receipt Date: 20100517
  Transmission Date: 20101027
  Serious: Yes (Hospitalization)
  Sender: FDA-Public Use
  Company Number: PHHY2010FR22058

PATIENT
  Sex: Female

DRUGS (4)
  1. NEORAL [Suspect]
     Indication: MYASTHENIA GRAVIS
     Dosage: 150 MG/DAY
     Dates: start: 20020901
  2. NEORAL [Suspect]
     Dosage: 250 MG/DAY
     Dates: start: 20021201
  3. CORTANCYL [Concomitant]
     Dosage: UNK
     Dates: start: 20000101
  4. MESTINON [Concomitant]
     Dosage: UNK
     Dates: start: 20010801

REACTIONS (7)
  - ABDOMINAL PAIN [None]
  - BLOOD AMYLASE INCREASED [None]
  - C-REACTIVE PROTEIN INCREASED [None]
  - DIVERTICULUM INTESTINAL [None]
  - LIPASE INCREASED [None]
  - PANCREATITIS ACUTE [None]
  - PELVIC MASS [None]
